FAERS Safety Report 7233478-9 (Version None)
Quarter: 2011Q1

REPORT INFORMATION
  Report Type: 
  Country: None (occurrence: None)
  Receive Date: 20110119
  Receipt Date: 20110114
  Transmission Date: 20110831
  Serious: Yes (Hospitalization)
  Sender: FDA-Public Use
  Company Number: SE-PFIZER INC-2010119409

PATIENT
  Age: 25 Year
  Sex: Female

DRUGS (23)
  1. PROPAVAN [Concomitant]
     Dosage: UNK
  2. RITALIN [Concomitant]
     Dosage: UNK
  3. ACETYLCYSTEINE [Concomitant]
     Dosage: UNK
  4. LERGIGAN [Concomitant]
     Dosage: UNK
  5. THERALEN [Concomitant]
     Dosage: UNK
  6. ALENDRONATE SODIUM [Concomitant]
     Dosage: UNK
  7. BACTRIM [Concomitant]
     Dosage: UNK
  8. CONCERTA [Concomitant]
     Dosage: UNK
  9. OMEPRAZOLE [Concomitant]
     Dosage: UNK
  10. PREDNISOLONE [Concomitant]
     Dosage: UNK
  11. TAVEGYL [Concomitant]
     Dosage: UNK
  12. TRADOLAN [Concomitant]
     Dosage: UNK
  13. NOZINAN [Concomitant]
     Dosage: UNK
  14. EPIPEN [Concomitant]
     Dosage: UNK
  15. LYRICA [Suspect]
     Dosage: UNK
  16. ZYPREXA [Concomitant]
     Dosage: UNK
  17. OXASCAND [Concomitant]
     Dosage: UNK
  18. SEREVENT [Concomitant]
     Dosage: UNK
  19. ZOLPIDEM TARTRATE [Concomitant]
     Dosage: UNK
  20. FLUOXETINE [Concomitant]
     Dosage: UNK
  21. SERETIDE [Concomitant]
     Dosage: UNK
  22. ACETAMINOPHEN [Concomitant]
     Dosage: UNK
  23. SONATA [Concomitant]
     Dosage: UNK

REACTIONS (1)
  - LUNG DISORDER [None]
